FAERS Safety Report 7564676-2 (Version None)
Quarter: 2011Q2

REPORT INFORMATION
  Report Type: 
  Country: None (occurrence: None)
  Receive Date: 20110622
  Receipt Date: 20101005
  Transmission Date: 20111010
  Serious: Yes (Death)
  Sender: FDA-Public Use
  Company Number: US-MYLANLABS-2010S1015204

PATIENT
  Age: 56 Year
  Sex: Male

DRUGS (3)
  1. CLOZAPINE [Suspect]
     Route: 048
  2. PARCOPA [Concomitant]
  3. SINEMET [Concomitant]

REACTIONS (1)
  - DECUBITUS ULCER [None]
